FAERS Safety Report 4731688-3 (Version None)
Quarter: 2005Q3

REPORT INFORMATION
  Report Type: 
  Country: None (occurrence: None)
  Receive Date: 20050725
  Receipt Date: 20050420
  Transmission Date: 20060218
  Serious: Yes (Disabling)
  Sender: FDA-Public Use
  Company Number: WAES 0504USA03940

PATIENT
  Sex: 0

DRUGS (1)
  1. VIOXX [Suspect]
     Dosage: UNK/UNK/PO
     Route: 048

REACTIONS (1)
  - POLYTRAUMATISM [None]
